FAERS Safety Report 8101292-8 (Version None)
Quarter: 2012Q1

REPORT INFORMATION
  Report Type: 
  Country: None (occurrence: None)
  Receive Date: 20120129
  Receipt Date: 20110929
  Transmission Date: 20120608
  Serious: No
  Sender: FDA-Public Use
  Company Number: US-ABBOTT-11P-163-0858953-00

PATIENT
  Sex: Female

DRUGS (4)
  1. HUMIRA [Suspect]
     Indication: PSORIASIS
     Dates: start: 20110707
  2. ALBUTEROL [Concomitant]
     Indication: ASTHMA
     Dosage: 4 DAILY, AS NEEDED
  3. LORTAB [Concomitant]
     Indication: ARTHRALGIA
  4. ZYRTEC [Concomitant]
     Indication: HYPERSENSITIVITY

REACTIONS (2)
  - ASTHMA [None]
  - DYSPNOEA [None]
